FAERS Safety Report 6389236-0 (Version None)
Quarter: 2009Q4

REPORT INFORMATION
  Report Type: 
  Country: None (occurrence: None)
  Receive Date: 20091006
  Receipt Date: 20090924
  Transmission Date: 20100525
  Serious: Yes (Other)
  Sender: FDA-Public Use
  Company Number: PHHY2009JP41682

PATIENT
  Age: 65 Year
  Sex: Male

DRUGS (2)
  1. CYCLOSPORINE [Suspect]
     Indication: GLOMERULONEPHRITIS MEMBRANOUS
     Dosage: UNK
     Route: 048
     Dates: start: 20080901
  2. CYCLOSPORINE [Suspect]
     Dosage: 75 MG, UNK
     Route: 048
     Dates: start: 20080901

REACTIONS (3)
  - DISEASE RECURRENCE [None]
  - OSTEONECROSIS [None]
  - RENAL IMPAIRMENT [None]
